FAERS Safety Report 10654609 (Version 1)
Quarter: 2014Q4

REPORT INFORMATION
  Report Type: Spontaneous
  Country: US (occurrence: None)
  Receive Date: 20141215
  Receipt Date: 20141215
  Transmission Date: 20150529
  Serious: No
  Sender: FDA-Public Use
  Company Number: None

PATIENT
  Age: 73 Year
  Sex: Female

DRUGS (1)
  1. TIKOSYN [Suspect]
     Active Substance: DOFETILIDE
     Indication: ILL-DEFINED DISORDER
     Route: 048
     Dates: start: 20140319

REACTIONS (1)
  - Chest pain [None]

NARRATIVE: CASE EVENT DATE: 20141211
